FAERS Safety Report 9174275 (Version 1)
Quarter: 2013Q1

REPORT INFORMATION
  Report Type: Spontaneous
  Country: GB (occurrence: GB)
  Receive Date: 20130320
  Receipt Date: 20130320
  Transmission Date: 20140127
  Serious: Yes (Death)
  Sender: FDA-Public Use
  Company Number: GB-JNJFOC-20130308781

PATIENT
  Sex: 0

DRUGS (13)
  1. DOXORUBICIN [Suspect]
     Indication: ACUTE LYMPHOCYTIC LEUKAEMIA
     Dosage: GIVEN FOR 3 WEEKS
     Route: 042
  2. ASPARAGINASE [Suspect]
     Indication: ACUTE LYMPHOCYTIC LEUKAEMIA
     Dosage: 1000 UNITS/M2 PER DOSE; ON DAY 4
     Route: 030
  3. VINCRISTINE [Suspect]
     Indication: ACUTE LYMPHOCYTIC LEUKAEMIA
     Route: 065
  4. DEXAMETHASONE [Suspect]
     Indication: ACUTE LYMPHOCYTIC LEUKAEMIA
     Dosage: EVERY ALTERNATE WEEKS, 6MG/M2 UPTO MAXIMUM OF 10MG
     Route: 048
  5. DEXAMETHASONE [Suspect]
     Indication: ACUTE LYMPHOCYTIC LEUKAEMIA
     Route: 048
  6. CYCLOPHOSPHAMIDE [Suspect]
     Indication: ACUTE LYMPHOCYTIC LEUKAEMIA
     Dosage: THEN 4 WEEKS OF CYCLOPHOSPHAMIDE
     Route: 065
  7. CYTARABINE [Suspect]
     Indication: ACUTE LYMPHOCYTIC LEUKAEMIA
     Dosage: 4 WEEKS OF CYTARABINE
     Route: 065
  8. STEROIDS NOS [Suspect]
     Indication: ACUTE LYMPHOCYTIC LEUKAEMIA
     Route: 065
  9. METHOTREXATE [Suspect]
     Indication: ACUTE LYMPHOCYTIC LEUKAEMIA
     Dosage: TWO DOSES
     Route: 037
  10. MERCAPTOPURINE [Suspect]
     Indication: ACUTE LYMPHOCYTIC LEUKAEMIA
     Dosage: TWO DOSES
     Route: 048
  11. METHOTREXATE [Suspect]
     Indication: ACUTE LYMPHOCYTIC LEUKAEMIA
     Dosage: {500 MG/M2 WITHOUT FOLINIC ACID RESCUE DURING INTERIM MAINTENANCE
     Route: 042
  12. DAUNORUBICIN [Suspect]
     Indication: ACUTE LYMPHOCYTIC LEUKAEMIA
     Dosage: DURING INDUCTION
     Route: 065
  13. METHOTREXATE [Suspect]
     Indication: ACUTE LYMPHOCYTIC LEUKAEMIA
     Dosage: INTERIM MAINTAINANCE COURSES
     Route: 065

REACTIONS (2)
  - Encephalopathy [Fatal]
  - Off label use [Unknown]
